FAERS Safety Report 16319262 (Version 1)
Quarter: 2019Q2

REPORT INFORMATION
  Report Type: Spontaneous
  Country: US (occurrence: US)
  Receive Date: 20190516
  Receipt Date: 20190516
  Transmission Date: 20190711
  Serious: No
  Sender: FDA-Public Use
  Company Number: US-ELI_LILLY_AND_COMPANY-US201905000495

PATIENT
  Sex: Female

DRUGS (1)
  1. EMGALITY [Suspect]
     Active Substance: GALCANEZUMAB-GNLM
     Indication: PRODUCT USED FOR UNKNOWN INDICATION
     Dosage: UNK, UNKNOWN
     Route: 065
     Dates: start: 20190424

REACTIONS (14)
  - Migraine [Unknown]
  - Headache [Unknown]
  - Sensitive skin [Unknown]
  - Swelling face [Recovered/Resolved]
  - Asthenia [Unknown]
  - Pain [Unknown]
  - Cough [Unknown]
  - Balance disorder [Unknown]
  - Eye swelling [Unknown]
  - Nausea [Recovered/Resolved]
  - Pain in extremity [Unknown]
  - Muscle strain [Unknown]
  - Feeling abnormal [Unknown]
  - Influenza like illness [Unknown]

NARRATIVE: CASE EVENT DATE: 20190425
